FAERS Safety Report 8419367-2 (Version None)
Quarter: 2012Q2

REPORT INFORMATION
  Report Type: 
  Country: None (occurrence: None)
  Receive Date: 20120607
  Receipt Date: 20120601
  Transmission Date: 20120825
  Serious: Yes (Other)
  Sender: FDA-Public Use
  Company Number: GB-PFIZER INC-2012133279

PATIENT
  Age: 51 Year
  Sex: Female
  Weight: 56.6 kg

DRUGS (17)
  1. RANITIDINE [Concomitant]
     Indication: PROPHYLAXIS
     Dosage: 150 MG, 2X/DAY
     Route: 048
     Dates: start: 20120402
  2. PREGABALIN [Concomitant]
     Indication: NEURALGIA
     Dosage: 75 MG, 2X/DAY
     Route: 048
  3. ONDANSETRON [Concomitant]
     Indication: VOMITING
  4. AZITHROMYCIN [Concomitant]
     Indication: PROPHYLAXIS
     Dosage: 250 MG, 2X/WEEK
     Dates: start: 20120412
  5. LEVOTHYROXINE [Concomitant]
     Indication: HYPOTHYROIDISM
     Dosage: 100 UG, 1X/DAY
     Route: 048
  6. LOPERAMIDE [Concomitant]
     Indication: DIARRHOEA
     Dosage: 2 MG, AS NEEDED
     Route: 048
     Dates: start: 20120402
  7. DALTEPARIN SODIUM [Concomitant]
     Indication: PULMONARY EMBOLISM
     Dosage: 12500 IU, 1X/DAY
     Route: 058
     Dates: start: 20120118
  8. METOCLOPRAMIDE [Concomitant]
     Indication: NAUSEA
     Dosage: 10 MG, 3X/DAY
     Route: 048
     Dates: start: 20120402
  9. ZOLEDRONIC ACID [Concomitant]
     Indication: METASTASES TO BONE
     Dosage: 4 MG, WEEKLY
     Route: 042
     Dates: start: 20120424
  10. CYCLIZINE [Concomitant]
     Indication: NAUSEA
     Dosage: 50 MG, 3X/DAY AS NEEDED
     Route: 048
     Dates: start: 20120405
  11. CRIZOTINIB [Suspect]
     Indication: ADENOCARCINOMA
     Dosage: 250 MG, 2X/DAY
     Route: 048
     Dates: start: 20120402
  12. METOCLOPRAMIDE [Concomitant]
     Indication: VOMITING
  13. ONDANSETRON [Concomitant]
     Indication: NAUSEA
     Dosage: 8 MG, 2X/DAY
     Route: 048
     Dates: start: 20120405
  14. OXYNORM [Concomitant]
     Indication: ANALGESIC THERAPY
     Dosage: 2.5 MG, AS NEEDED
     Route: 048
     Dates: start: 20120315
  15. PARACETAMOL [Concomitant]
     Indication: ANALGESIC THERAPY
     Dosage: 1 G, AS NEEDED
     Route: 048
  16. CYCLIZINE [Concomitant]
     Indication: VOMITING
  17. OXYCONTIN [Concomitant]
     Indication: ANALGESIC THERAPY
     Dosage: 5 MG, 2X/DAY
     Route: 048
     Dates: start: 20120315

REACTIONS (4)
  - BRADYCARDIA [None]
  - DIARRHOEA [None]
  - HYPOTENSION [None]
  - OEDEMA PERIPHERAL [None]
